FAERS Safety Report 8119048-9 (Version None)
Quarter: 2011Q4

REPORT INFORMATION
  Report Type: 
  Country: None (occurrence: None)
  Receive Date: 20111227
  Receipt Date: 20111010
  Transmission Date: 20120403
  Serious: No
  Sender: FDA-Public Use
  Company Number: PHEH2011US05026

PATIENT
  Age: 32 Year
  Sex: Female

DRUGS (7)
  1. SINGULAIR [Concomitant]
  2. ADVAIR HFA [Concomitant]
  3. CONTRACEPTIVES NOS (NO INGREDIENTS/SUBSTANCES) [Concomitant]
  4. WELLBUTRIN (BUPROPION HYDROBROMIDE) [Concomitant]
  5. GILENYA [Suspect]
     Indication: MULTIPLE SCLEROSIS
     Dosage: 0.5 MG, QD, ORAL
     Route: 048
     Dates: start: 20110601
  6. TOPAMAX [Concomitant]
  7. XOLAIR [Concomitant]

REACTIONS (2)
  - INSOMNIA [None]
  - SLEEP DISORDER [None]
